FAERS Safety Report 17361447 (Version 2)
Quarter: 2020Q2

REPORT INFORMATION
  Report Type: Spontaneous
  Country: US (occurrence: US)
  Receive Date: 20200203
  Receipt Date: 20200430
  Transmission Date: 20200713
  Serious: No
  Sender: FDA-Public Use
  Company Number: US-PFIZER INC-2020041474

PATIENT
  Age: 55 Year
  Sex: Female

DRUGS (2)
  1. OMEPRAZOLE. [Concomitant]
     Active Substance: OMEPRAZOLE
     Dosage: UNK
  2. XELJANZ XR [Suspect]
     Active Substance: TOFACITINIB CITRATE
     Indication: RHEUMATOID ARTHRITIS
     Dosage: 11 MG, DAILY
     Route: 048
     Dates: start: 20190917

REACTIONS (10)
  - Gait inability [Recovering/Resolving]
  - Asthenia [Unknown]
  - Dysstasia [Unknown]
  - Back pain [Recovering/Resolving]
  - Inflammation [Unknown]
  - Loss of personal independence in daily activities [Unknown]
  - Insomnia [Unknown]
  - Arthralgia [Unknown]
  - Dyspnoea [Unknown]
  - Fatigue [Unknown]
